FAERS Safety Report 23661230 (Version 2)
Quarter: 2024Q2

REPORT INFORMATION
  Report Type: Spontaneous
  Country: CN (occurrence: CN)
  Receive Date: 20240322
  Receipt Date: 20240403
  Transmission Date: 20240717
  Serious: Yes (Hospitalization, Other)
  Sender: FDA-Public Use
  Company Number: CN-ENDO PHARMACEUTICALS INC-2024-001352

PATIENT
  Age: 63 Year
  Sex: Male

DRUGS (5)
  1. BUPROPION HYDROCHLORIDE [Suspect]
     Active Substance: BUPROPION HYDROCHLORIDE
     Indication: Depression
     Dosage: 300 MILLIGRAM, BID (150 MG IN THE MORNING AND AFTERNOON, RESPECTIVELY) DOSE INCREASED ON DAY 4
     Route: 065
     Dates: start: 20220718
  2. BUPROPION HYDROCHLORIDE [Suspect]
     Active Substance: BUPROPION HYDROCHLORIDE
     Dosage: 150 MILLIGRAM, DAILY
     Route: 065
     Dates: start: 202207, end: 202207
  3. PAROXETINE [Suspect]
     Active Substance: PAROXETINE
     Indication: Depression
     Dosage: WAS GRADUALLY INCREASED TO 40 MILLIGRAM, DAILY FROM AN UNKNOWN DOSE
     Route: 065
     Dates: start: 202205
  4. CANDESARTAN CILEXETIL [Concomitant]
     Active Substance: CANDESARTAN CILEXETIL
     Indication: Hypertension
     Dosage: 4 MILLIGRAM, DAILY
     Route: 048
  5. ALPRAZOLAM [Concomitant]
     Active Substance: ALPRAZOLAM
     Indication: Depression
     Dosage: WAS 0.4 MILLIGRAM, DAILY (IN THE OUTPATIENT CLINIC WITHIN 4 WEEKS)
     Route: 065
     Dates: start: 202205

REACTIONS (2)
  - Serotonin syndrome [Recovered/Resolved]
  - Drug interaction [Recovered/Resolved]

NARRATIVE: CASE EVENT DATE: 20220718
